FAERS Safety Report 8881918 (Version 2)
Quarter: 2012Q4

REPORT INFORMATION
  Report Type: 
  Country: US (occurrence: US)
  Receive Date: 20121101
  Receipt Date: 20121121
  Transmission Date: 20130627
  Serious: No
  Sender: FDA-Public Use
  Company Number: US-PFIZER INC-2012269287

PATIENT
  Age: 32 Year
  Sex: Male
  Weight: 108.84 kg

DRUGS (1)
  1. VIAGRA [Suspect]
     Dosage: 200 mg, UNK
     Route: 048
     Dates: start: 20121026

REACTIONS (2)
  - Incorrect dose administered [Unknown]
  - Painful erection [Not Recovered/Not Resolved]
